FAERS Safety Report 4561805-X (Version None)
Quarter: 2005Q1

REPORT INFORMATION
  Report Type: 
  Country: None (occurrence: None)
  Receive Date: 20050125
  Receipt Date: 20050111
  Transmission Date: 20050727
  Serious: Yes (Other)
  Sender: FDA-Public Use
  Company Number: US013632

PATIENT
  Age: 38 Year
  Sex: Male
  Weight: 75.7507 kg

DRUGS (4)
  1. GABITRIL [Suspect]
     Indication: ANXIETY DISORDER
     Dosage: 2 MG QD ORAL
     Route: 048
  2. PROZAC [Concomitant]
  3. ZYPREXA [Concomitant]
  4. ADDERALL 5 [Concomitant]

REACTIONS (1)
  - CATATONIA [None]
